FAERS Safety Report 19451140 (Version 1)
Quarter: 2021Q2

REPORT INFORMATION
  Report Type: Spontaneous
  Country: CA (occurrence: CA)
  Receive Date: 20210623
  Receipt Date: 20210623
  Transmission Date: 20210717
  Serious: Yes (Other)
  Sender: FDA-Public Use
  Company Number: CA-SAMSUNG BIOEPIS-SB-2021-14727

PATIENT
  Age: 43 Year
  Sex: Female

DRUGS (116)
  1. ACTEMRA [Suspect]
     Active Substance: TOCILIZUMAB
     Indication: RHEUMATOID ARTHRITIS
     Dosage: UNKNOWN
     Route: 042
  2. APREMILAST [Suspect]
     Active Substance: APREMILAST
     Indication: PRODUCT USED FOR UNKNOWN INDICATION
     Route: 065
  3. ARAVA [Suspect]
     Active Substance: LEFLUNOMIDE
     Dosage: UNKNOWN
     Route: 065
  4. CETIRIZINE HYDROCHLORIDE. [Suspect]
     Active Substance: CETIRIZINE HYDROCHLORIDE
     Indication: RHEUMATOID ARTHRITIS
     Route: 065
  5. CETIRIZINE HYDROCHLORIDE. [Suspect]
     Active Substance: CETIRIZINE HYDROCHLORIDE
     Route: 065
  6. CETIRIZINE HYDROCHLORIDE/PSEUDOEPHEDRINE HYDROCHLORIDE [Suspect]
     Active Substance: CETIRIZINE HYDROCHLORIDE\PSEUDOEPHEDRINE HYDROCHLORIDE
     Dosage: UNKNOWN
     Route: 065
  7. CIMZIA [Suspect]
     Active Substance: CERTOLIZUMAB PEGOL
     Indication: RHEUMATOID ARTHRITIS
     Route: 058
  8. DESOXIMETASONE. [Suspect]
     Active Substance: DESOXIMETASONE
     Dosage: UNKNOWN
     Route: 058
  9. ENBREL [Suspect]
     Active Substance: ETANERCEPT
     Route: 058
  10. FOLIC ACID. [Suspect]
     Active Substance: FOLIC ACID
     Indication: RHEUMATOID ARTHRITIS
     Route: 065
  11. FOLIC ACID. [Suspect]
     Active Substance: FOLIC ACID
     Route: 065
  12. HYDROXYCHLOROQUINE SULFATE. [Suspect]
     Active Substance: HYDROXYCHLOROQUINE SULFATE
     Indication: RHEUMATOID ARTHRITIS
     Route: 048
  13. METHOTREXATE. [Suspect]
     Active Substance: METHOTREXATE
     Route: 048
  14. SIMPONI [Suspect]
     Active Substance: GOLIMUMAB
     Route: 058
  15. SULFASALAZINE. [Suspect]
     Active Substance: SULFASALAZINE
     Route: 048
  16. INFLIXIMAB [Suspect]
     Active Substance: INFLIXIMAB
     Dosage: UNKNOWN
     Route: 042
  17. ACETAMINOPHEN. [Suspect]
     Active Substance: ACETAMINOPHEN
     Indication: PRODUCT USED FOR UNKNOWN INDICATION
     Dosage: UNKNOWN
     Route: 065
  18. DICLOFENAC [Suspect]
     Active Substance: DICLOFENAC
     Indication: PRODUCT USED FOR UNKNOWN INDICATION
     Route: 065
  19. ERELZI [Suspect]
     Active Substance: ETANERCEPT-SZZS
     Indication: RHEUMATOID ARTHRITIS
     Route: 058
  20. FLUMETASONE PIVALATE [Suspect]
     Active Substance: FLUMETHASONE PIVALATE
     Indication: RHEUMATOID ARTHRITIS
     Dosage: UNKNOWN
     Route: 058
  21. FOLIC ACID. [Suspect]
     Active Substance: FOLIC ACID
     Route: 058
  22. HUMIRA [Suspect]
     Active Substance: ADALIMUMAB
     Route: 058
  23. HYDROCORTISONE ACETATE. [Suspect]
     Active Substance: HYDROCORTISONE ACETATE
     Indication: PRODUCT USED FOR UNKNOWN INDICATION
     Dosage: UNKNOWN
     Route: 065
  24. HYDROXYCHLOROQUINE SULFATE. [Suspect]
     Active Substance: HYDROXYCHLOROQUINE SULFATE
     Route: 065
  25. LEFLUNOMIDE. [Suspect]
     Active Substance: LEFLUNOMIDE
     Indication: RHEUMATOID ARTHRITIS
     Route: 048
  26. MYCOPHENOLATE MOFETIL. [Suspect]
     Active Substance: MYCOPHENOLATE MOFETIL
     Indication: PRODUCT USED FOR UNKNOWN INDICATION
     Dosage: UNKNOWN
     Route: 065
  27. NAPROXEN SODIUM. [Suspect]
     Active Substance: NAPROXEN SODIUM
     Indication: RHEUMATOID ARTHRITIS
     Route: 065
  28. ORENCIA [Suspect]
     Active Substance: ABATACEPT
     Indication: RHEUMATOID ARTHRITIS
     Dosage: UNKNOWN
     Route: 041
  29. PREDNISONE. [Suspect]
     Active Substance: PREDNISONE
     Indication: CONDITION AGGRAVATED
     Route: 048
  30. SIMPONI [Suspect]
     Active Substance: GOLIMUMAB
     Dosage: SOLUTION SUBCUTANEOUS
     Route: 058
  31. XELJANZ [Suspect]
     Active Substance: TOFACITINIB CITRATE
     Indication: RHEUMATOID ARTHRITIS
     Route: 048
  32. LEVOTHYROXINE SODIUM. [Concomitant]
     Active Substance: LEVOTHYROXINE SODIUM
     Indication: PRODUCT USED FOR UNKNOWN INDICATION
     Dosage: UNKNOWN
     Route: 065
  33. MELOXICAM. [Concomitant]
     Active Substance: MELOXICAM
     Indication: PRODUCT USED FOR UNKNOWN INDICATION
     Dosage: UNKNOWN
     Route: 065
  34. RAMIPRIL. [Concomitant]
     Active Substance: RAMIPRIL
     Indication: PRODUCT USED FOR UNKNOWN INDICATION
     Dosage: UNKNOWN
     Route: 065
  35. ADALIMUMAB [Suspect]
     Active Substance: ADALIMUMAB
     Indication: RHEUMATOID ARTHRITIS
     Route: 065
  36. ADALIMUMAB [Suspect]
     Active Substance: ADALIMUMAB
     Route: 058
  37. ARAVA [Suspect]
     Active Substance: LEFLUNOMIDE
     Indication: RHEUMATOID ARTHRITIS
     Route: 048
  38. COSENTYX [Suspect]
     Active Substance: SECUKINUMAB
     Indication: PSORIATIC ARTHROPATHY
     Dosage: UNKNOWN
     Route: 065
  39. DESOXIMETASONE. [Suspect]
     Active Substance: DESOXIMETASONE
     Dosage: UNKNOWN
     Route: 065
  40. DICLOFENAC SODIUM. [Suspect]
     Active Substance: DICLOFENAC SODIUM
     Indication: PRODUCT USED FOR UNKNOWN INDICATION
     Dosage: UNKNOWN
     Route: 065
  41. GOLIMUMAB [Suspect]
     Active Substance: GOLIMUMAB
     Indication: RHEUMATOID ARTHRITIS
     Dosage: UNKNOWN
     Route: 065
  42. PREDNISONE. [Suspect]
     Active Substance: PREDNISONE
     Route: 048
  43. XELJANZ [Suspect]
     Active Substance: TOFACITINIB CITRATE
     Route: 048
  44. LISINOPRIL DIHYDRATE [Concomitant]
     Active Substance: LISINOPRIL
     Indication: PRODUCT USED FOR UNKNOWN INDICATION
     Dosage: UNKNOWN
     Route: 065
  45. INFLIXIMAB [Suspect]
     Active Substance: INFLIXIMAB
     Indication: RHEUMATOID ARTHRITIS
     Route: 065
  46. CIMZIA [Suspect]
     Active Substance: CERTOLIZUMAB PEGOL
     Indication: PSORIASIS
     Dosage: UNKNOWN
     Route: 065
  47. FOLIC ACID. [Suspect]
     Active Substance: FOLIC ACID
     Route: 065
  48. METHOTREXATE. [Suspect]
     Active Substance: METHOTREXATE
     Route: 048
  49. METHOTREXATE. [Suspect]
     Active Substance: METHOTREXATE
     Route: 065
  50. RITUXIMAB. [Suspect]
     Active Substance: RITUXIMAB
     Indication: RHEUMATOID ARTHRITIS
     Dosage: UNKNOWN
     Route: 058
  51. SIMPONI [Suspect]
     Active Substance: GOLIMUMAB
     Dosage: UNKNOWN
     Route: 065
  52. SULFASALAZINE. [Suspect]
     Active Substance: SULFASALAZINE
     Route: 048
  53. TOFACITINIB CITRATE [Suspect]
     Active Substance: TOFACITINIB CITRATE
     Indication: PSORIATIC ARTHROPATHY
  54. XELJANZ [Suspect]
     Active Substance: TOFACITINIB CITRATE
     Route: 065
  55. PANTOPRAZOLE [Concomitant]
     Active Substance: PANTOPRAZOLE
     Indication: PRODUCT USED FOR UNKNOWN INDICATION
     Dosage: UNKNOWN
     Route: 065
  56. QUETIAPINE. [Concomitant]
     Active Substance: QUETIAPINE
     Indication: PRODUCT USED FOR UNKNOWN INDICATION
     Dosage: UNKNOWN
     Route: 065
  57. ALENDRONATE SODIUM. [Suspect]
     Active Substance: ALENDRONATE SODIUM
     Indication: RHEUMATOID ARTHRITIS
     Dosage: UNKNOWN
     Route: 065
  58. DESOXIMETASONE. [Suspect]
     Active Substance: DESOXIMETASONE
     Indication: RHEUMATOID ARTHRITIS
     Route: 048
  59. FOLIC ACID. [Suspect]
     Active Substance: FOLIC ACID
     Route: 065
  60. FOSAMAX [Suspect]
     Active Substance: ALENDRONATE SODIUM
     Indication: RHEUMATOID ARTHRITIS
     Dosage: UNKNOWN
     Route: 048
  61. HYDROXYCHLOROQUINE [Suspect]
     Active Substance: HYDROXYCHLOROQUINE
     Dosage: UNKNOWN
     Route: 048
  62. PHTHALYLSULFATHIAZOLE [Suspect]
     Active Substance: PHTHALYLSULFATHIAZOLE
     Indication: RHEUMATOID ARTHRITIS
     Dosage: UNKNOWN
     Route: 065
  63. RITUXIMAB. [Suspect]
     Active Substance: RITUXIMAB
     Dosage: UNKNOWN
     Route: 042
  64. TOPICORT [Suspect]
     Active Substance: DESOXIMETASONE
     Indication: RHEUMATOID ARTHRITIS
     Dosage: UNKNOWN
     Route: 048
  65. TOFACITINIB [Suspect]
     Active Substance: TOFACITINIB
     Indication: RHEUMATOID ARTHRITIS
     Route: 048
  66. IBUPROFEN. [Concomitant]
     Active Substance: IBUPROFEN
     Indication: PRODUCT USED FOR UNKNOWN INDICATION
     Dosage: UNKNOWN
     Route: 065
  67. RISEDRONATE SODIUM. [Concomitant]
     Active Substance: RISEDRONATE SODIUM
     Indication: PRODUCT USED FOR UNKNOWN INDICATION
     Dosage: UNKNOWN
     Route: 065
  68. SALAZOPYRIN [Concomitant]
     Active Substance: SULFASALAZINE
     Indication: PRODUCT USED FOR UNKNOWN INDICATION
     Dosage: UNKNOWN
     Route: 065
  69. VITAMIN D3 [Concomitant]
     Active Substance: CHOLECALCIFEROL
     Indication: PRODUCT USED FOR UNKNOWN INDICATION
     Dosage: UNKNOWN
     Route: 065
  70. ALENDRONATE SODIUM. [Suspect]
     Active Substance: ALENDRONATE SODIUM
     Dosage: UNKNOWN
     Route: 048
  71. CETIRIZINE HYDROCHLORIDE/PSEUDOEPHEDRINE HYDROCHLORIDE [Suspect]
     Active Substance: CETIRIZINE HYDROCHLORIDE\PSEUDOEPHEDRINE HYDROCHLORIDE
     Dosage: UNKNOWN
     Route: 065
  72. DESOXIMETASONE. [Suspect]
     Active Substance: DESOXIMETASONE
     Dosage: UNKNOWN
     Route: 048
  73. HYDROXYCHLOROQUINE SULFATE. [Suspect]
     Active Substance: HYDROXYCHLOROQUINE SULFATE
     Route: 066
  74. LYRICA [Suspect]
     Active Substance: PREGABALIN
     Indication: PRODUCT USED FOR UNKNOWN INDICATION
     Dosage: UNKNOWN
     Route: 065
  75. METHOTREXATE. [Suspect]
     Active Substance: METHOTREXATE
     Route: 048
  76. OTEZLA [Suspect]
     Active Substance: APREMILAST
     Indication: PRODUCT USED FOR UNKNOWN INDICATION
     Route: 048
  77. PSEUDOEPHEDRINE HYDROCHLORIDE. [Suspect]
     Active Substance: PSEUDOEPHEDRINE HYDROCHLORIDE
     Indication: RHEUMATOID ARTHRITIS
     Dosage: UNKNOWN
     Route: 065
  78. SULFASALAZINE. [Suspect]
     Active Substance: SULFASALAZINE
     Indication: RHEUMATOID ARTHRITIS
     Route: 065
  79. TOCILIZUMAB. [Suspect]
     Active Substance: TOCILIZUMAB
     Indication: RHEUMATOID ARTHRITIS
     Dosage: UNKNOWN
     Route: 058
  80. TOFACITINIB CITRATE [Suspect]
     Active Substance: TOFACITINIB CITRATE
     Indication: RHEUMATOID ARTHRITIS
     Route: 048
  81. USTEKINUMAB [Suspect]
     Active Substance: USTEKINUMAB
     Route: 042
  82. CORTISONE ACETATE. [Suspect]
     Active Substance: CORTISONE ACETATE
     Indication: RHEUMATOID ARTHRITIS
     Route: 065
  83. DOXYCYCLINE. [Suspect]
     Active Substance: DOXYCYCLINE
     Indication: PRODUCT USED FOR UNKNOWN INDICATION
     Route: 065
  84. FOLIC ACID. [Suspect]
     Active Substance: FOLIC ACID
     Route: 065
  85. METHOTREXATE. [Suspect]
     Active Substance: METHOTREXATE
     Indication: PRODUCT USED FOR UNKNOWN INDICATION
     Route: 058
  86. ORENCIA [Suspect]
     Active Substance: ABATACEPT
     Dosage: UNKNOWN
     Route: 058
  87. ORENCIA [Suspect]
     Active Substance: ABATACEPT
     Dosage: UNKNOWN
     Route: 042
  88. PLAQUENIL [Suspect]
     Active Substance: HYDROXYCHLOROQUINE SULFATE
     Indication: RHEUMATOID ARTHRITIS
     Route: 065
  89. SIMPONI [Suspect]
     Active Substance: GOLIMUMAB
     Indication: RHEUMATOID ARTHRITIS
     Dosage: UNKNOWN
     Route: 042
  90. SIMPONI [Suspect]
     Active Substance: GOLIMUMAB
     Dosage: UNKNOWN
     Route: 058
  91. STELARA [Suspect]
     Active Substance: USTEKINUMAB
     Indication: PRODUCT USED FOR UNKNOWN INDICATION
     Route: 042
  92. SULFASALAZINE. [Suspect]
     Active Substance: SULFASALAZINE
     Route: 048
  93. WINPRED [Suspect]
     Active Substance: PREDNISONE
     Indication: RHEUMATOID ARTHRITIS
     Dosage: UNKNOWN
     Route: 048
  94. PIROXICAM. [Concomitant]
     Active Substance: PIROXICAM
     Indication: PRODUCT USED FOR UNKNOWN INDICATION
     Dosage: UNKNOWN
     Route: 065
  95. INFLIXIMAB [Suspect]
     Active Substance: INFLIXIMAB
     Dosage: UNKNOWN
     Route: 042
  96. CELEBREX [Suspect]
     Active Substance: CELECOXIB
     Indication: PRODUCT USED FOR UNKNOWN INDICATION
     Route: 048
  97. CETIRIZINE HYDROCHLORIDE/PSEUDOEPHEDRINE HYDROCHLORIDE [Suspect]
     Active Substance: CETIRIZINE HYDROCHLORIDE\PSEUDOEPHEDRINE HYDROCHLORIDE
     Indication: RHEUMATOID ARTHRITIS
     Route: 048
  98. CORTISONE ACETATE. [Suspect]
     Active Substance: CORTISONE ACETATE
     Dosage: UNKNOWN
     Route: 048
  99. DICLOFENAC DIETHYLAMINE [Suspect]
     Active Substance: DICLOFENAC DIETHYLAMINE
     Indication: PRODUCT USED FOR UNKNOWN INDICATION
     Dosage: UNKNOWN
     Route: 065
  100. ENBREL [Suspect]
     Active Substance: ETANERCEPT
     Indication: RHEUMATOID ARTHRITIS
     Route: 058
  101. FOLIC ACID. [Suspect]
     Active Substance: FOLIC ACID
     Route: 065
  102. HUMIRA [Suspect]
     Active Substance: ADALIMUMAB
     Indication: RHEUMATOID ARTHRITIS
     Dosage: SOLUTION SUBCUTANEOUS
     Route: 058
  103. HYDROXYCHLOROQUINE [Suspect]
     Active Substance: HYDROXYCHLOROQUINE
     Indication: RHEUMATOID ARTHRITIS
     Route: 065
  104. HYDROXYCHLOROQUINE [Suspect]
     Active Substance: HYDROXYCHLOROQUINE
     Dosage: UNKNOWN
     Route: 065
  105. KEVZARA [Suspect]
     Active Substance: SARILUMAB
     Indication: RHEUMATOID ARTHRITIS
     Dosage: UNKNOWN
     Route: 065
  106. METHOTREXATE. [Suspect]
     Active Substance: METHOTREXATE
     Route: 065
  107. PREDNISONE. [Suspect]
     Active Substance: PREDNISONE
     Indication: RHEUMATOID ARTHRITIS
     Dosage: UNKNOWN
     Route: 065
  108. REMICADE [Suspect]
     Active Substance: INFLIXIMAB
     Indication: RHEUMATOID ARTHRITIS
     Dosage: POWDER FOR SOLUTION INTRAVENOUS?DOSE: UNKNOWN
     Route: 042
  109. STELARA [Suspect]
     Active Substance: USTEKINUMAB
     Dosage: DOSE: UNKNOWN?SOLUTION SUBCUTANEOUS
     Route: 058
  110. TOPICORT [Suspect]
     Active Substance: DESOXIMETASONE
     Dosage: UNKNOWN
     Route: 058
  111. USTEKINUMAB [Suspect]
     Active Substance: USTEKINUMAB
     Indication: PRODUCT USED FOR UNKNOWN INDICATION
     Route: 058
  112. TOFACITINIB [Suspect]
     Active Substance: TOFACITINIB
     Route: 065
  113. CALCIUM [Concomitant]
     Active Substance: CALCIUM
     Indication: PRODUCT USED FOR UNKNOWN INDICATION
     Dosage: UNKNOWN
     Route: 065
  114. DEXAMETHASONE. [Concomitant]
     Active Substance: DEXAMETHASONE
     Indication: PRODUCT USED FOR UNKNOWN INDICATION
     Dosage: UNKNOWN
     Route: 065
  115. MAGNESIUM [Concomitant]
     Active Substance: MAGNESIUM
     Indication: PRODUCT USED FOR UNKNOWN INDICATION
     Dosage: UNKNOWN
     Route: 065
  116. PREDNISOLONE. [Concomitant]
     Active Substance: PREDNISOLONE
     Indication: PRODUCT USED FOR UNKNOWN INDICATION
     Dosage: UNKNOWN
     Route: 065

REACTIONS (62)
  - Arthralgia [Not Recovered/Not Resolved]
  - Duodenal ulcer perforation [Not Recovered/Not Resolved]
  - Infusion related reaction [Not Recovered/Not Resolved]
  - Sciatica [Not Recovered/Not Resolved]
  - Sinusitis [Not Recovered/Not Resolved]
  - Maternal exposure during pregnancy [Not Recovered/Not Resolved]
  - Therapeutic product effect decreased [Not Recovered/Not Resolved]
  - Treatment failure [Not Recovered/Not Resolved]
  - Intentional product use issue [Not Recovered/Not Resolved]
  - Abdominal discomfort [Not Recovered/Not Resolved]
  - Alopecia [Not Recovered/Not Resolved]
  - Condition aggravated [Not Recovered/Not Resolved]
  - Hand deformity [Not Recovered/Not Resolved]
  - Hypertension [Not Recovered/Not Resolved]
  - Hypoaesthesia [Not Recovered/Not Resolved]
  - Malaise [Not Recovered/Not Resolved]
  - Pain [Not Recovered/Not Resolved]
  - Psoriatic arthropathy [Not Recovered/Not Resolved]
  - Rheumatoid arthritis [Not Recovered/Not Resolved]
  - Fatigue [Not Recovered/Not Resolved]
  - Hepatic enzyme increased [Not Recovered/Not Resolved]
  - Hypersensitivity [Not Recovered/Not Resolved]
  - Musculoskeletal stiffness [Not Recovered/Not Resolved]
  - Prescribed overdose [Not Recovered/Not Resolved]
  - Headache [Not Recovered/Not Resolved]
  - Liver injury [Not Recovered/Not Resolved]
  - Rash [Not Recovered/Not Resolved]
  - Synovitis [Not Recovered/Not Resolved]
  - Systemic lupus erythematosus [Not Recovered/Not Resolved]
  - Wheezing [Not Recovered/Not Resolved]
  - Abdominal pain upper [Not Recovered/Not Resolved]
  - Anti-cyclic citrullinated peptide antibody positive [Not Recovered/Not Resolved]
  - Diarrhoea [Not Recovered/Not Resolved]
  - Drug hypersensitivity [Not Recovered/Not Resolved]
  - Glossodynia [Not Recovered/Not Resolved]
  - Mobility decreased [Not Recovered/Not Resolved]
  - Rheumatic fever [Not Recovered/Not Resolved]
  - Swelling [Not Recovered/Not Resolved]
  - Vomiting [Not Recovered/Not Resolved]
  - Wound [Not Recovered/Not Resolved]
  - Contraindicated product administered [Not Recovered/Not Resolved]
  - Adverse drug reaction [Not Recovered/Not Resolved]
  - Arthropathy [Not Recovered/Not Resolved]
  - Blood cholesterol increased [Not Recovered/Not Resolved]
  - Injury [Not Recovered/Not Resolved]
  - Joint swelling [Not Recovered/Not Resolved]
  - Oedema [Not Recovered/Not Resolved]
  - Pemphigus [Not Recovered/Not Resolved]
  - Type 2 diabetes mellitus [Not Recovered/Not Resolved]
  - Drug intolerance [Not Recovered/Not Resolved]
  - Drug ineffective [Not Recovered/Not Resolved]
  - Product use issue [Not Recovered/Not Resolved]
  - Blister [Not Recovered/Not Resolved]
  - Decreased appetite [Not Recovered/Not Resolved]
  - General physical health deterioration [Not Recovered/Not Resolved]
  - Helicobacter infection [Not Recovered/Not Resolved]
  - Pericarditis [Not Recovered/Not Resolved]
  - Rheumatoid factor positive [Not Recovered/Not Resolved]
  - Swollen joint count increased [Not Recovered/Not Resolved]
  - Off label use [Not Recovered/Not Resolved]
  - Discomfort [Not Recovered/Not Resolved]
  - Fibromyalgia [Not Recovered/Not Resolved]
